FAERS Safety Report 15838241 (Version 1)
Quarter: 2018Q4

REPORT INFORMATION
  Report Type: Spontaneous
  Country: US (occurrence: US)
  Receive Date: 20181222
  Receipt Date: 20181222
  Transmission Date: 20190205
  Serious: Yes (Hospitalization)
  Sender: FDA-Public Use
  Company Number: None

PATIENT
  Age: 53 Year
  Sex: Female
  Weight: 81 kg

DRUGS (4)
  1. CYCLOPHOSPHAMIDE. [Suspect]
     Active Substance: CYCLOPHOSPHAMIDE
     Dates: end: 20181101
  2. CARBOPLATIN (241240) [Suspect]
     Active Substance: CARBOPLATIN
     Dates: end: 20181115
  3. DOXORUBICIN HYDROCHLORIDE. [Suspect]
     Active Substance: DOXORUBICIN HYDROCHLORIDE
     Dates: end: 20181101
  4. TAXOL [Suspect]
     Active Substance: PACLITAXEL
     Dates: end: 20181207

REACTIONS (5)
  - Chest pain [None]
  - Dyspnoea [None]
  - Pulmonary embolism [None]
  - Neutrophil count decreased [None]
  - Deep vein thrombosis [None]

NARRATIVE: CASE EVENT DATE: 20181215
